FAERS Safety Report 24296333 (Version 1)
Quarter: 2024Q3

REPORT INFORMATION
  Report Type: Spontaneous
  Country: DE (occurrence: DE)
  Receive Date: 20240909
  Receipt Date: 20240909
  Transmission Date: 20241017
  Serious: Yes (Other)
  Sender: ABBVIE
  Company Number: None

PATIENT

DRUGS (6)
  1. ESCITALOPRAM [Suspect]
     Active Substance: ESCITALOPRAM OXALATE
     Indication: Product used for unknown indication
     Route: 048
     Dates: start: 202306
  2. ESCITALOPRAM [Suspect]
     Active Substance: ESCITALOPRAM OXALATE
     Indication: Product used for unknown indication
     Route: 048
  3. Tavor [Concomitant]
     Indication: Product used for unknown indication
     Dosage: 1.5 MILLIGRAM
     Dates: start: 2020, end: 2023
  4. SEROQUEL [Suspect]
     Active Substance: QUETIAPINE FUMARATE
     Indication: Depression
     Dosage: 750 MG DAILY; TAPERING FROM JANUARY TO JULY 2024
     Route: 048
     Dates: start: 20200301, end: 202407
  5. HALOPERIDOL [Suspect]
     Active Substance: HALOPERIDOL
     Indication: Product used for unknown indication
     Route: 065
     Dates: start: 202306
  6. SERTRALINE HYDROCHLORIDE [Suspect]
     Active Substance: SERTRALINE HYDROCHLORIDE
     Indication: Product used for unknown indication
     Route: 065

REACTIONS (8)
  - Hallucination [Unknown]
  - Increased appetite [Recovering/Resolving]
  - Feeling abnormal [Unknown]
  - Sexual dysfunction [Recovering/Resolving]
  - Poor peripheral circulation [Unknown]
  - Tooth loss [Recovered/Resolved with Sequelae]
  - Weight increased [Not Recovered/Not Resolved]
  - Sedation [Recovering/Resolving]

NARRATIVE: CASE EVENT DATE: 20200301
